FAERS Safety Report 15439403 (Version 1)
Quarter: 2018Q3

REPORT INFORMATION
  Report Type: Spontaneous
  Country: US (occurrence: US)
  Receive Date: 20180924
  Receipt Date: 20180924
  Transmission Date: 20181010
  Serious: No
  Sender: FDA-Public Use
  Company Number: None

PATIENT
  Age: 63 Year
  Weight: 69.85 kg

DRUGS (1)
  1. TEMOZOLOMIDE 250 MG [Suspect]
     Active Substance: TEMOZOLOMIDE
     Indication: BRAIN NEOPLASM MALIGNANT
     Dosage: ?          OTHER FREQUENCY:X 5 DAYS ;?
     Route: 048
     Dates: start: 20180624, end: 20180621

REACTIONS (1)
  - Disease progression [None]

NARRATIVE: CASE EVENT DATE: 20180921
